FAERS Safety Report 16798987 (Version 1)
Quarter: 2019Q3

REPORT INFORMATION
  Report Type: Spontaneous
  Country: US (occurrence: US)
  Receive Date: 20190912
  Receipt Date: 20190912
  Transmission Date: 20191005
  Serious: No
  Sender: FDA-Public Use
  Company Number: US-NVP-000021

PATIENT
  Age: 10 Month

DRUGS (1)
  1. SIROLIMUS. [Suspect]
     Active Substance: SIROLIMUS
     Indication: PANCREATIC NEOPLASM
     Dosage: SOLUTION
     Route: 048
     Dates: start: 201906

REACTIONS (3)
  - Product use in unapproved indication [Unknown]
  - Product administration error [Unknown]
  - Product use issue [Unknown]

NARRATIVE: CASE EVENT DATE: 201906
